FAERS Safety Report 6989330-7 (Version None)
Quarter: 2010Q3

REPORT INFORMATION
  Report Type: 
  Country: None (occurrence: None)
  Receive Date: 20100916
  Receipt Date: 20100906
  Transmission Date: 20110219
  Serious: Yes (Other)
  Sender: FDA-Public Use
  Company Number: GR-WATSON-2010-12091

PATIENT
  Age: 67 Year
  Sex: Female

DRUGS (1)
  1. FORTAMET [Suspect]
     Indication: PRODUCT USED FOR UNKNOWN INDICATION
     Dosage: 850 MG, TID

REACTIONS (4)
  - DRUG PRESCRIBING ERROR [None]
  - HYPOPHOSPHATAEMIA [None]
  - INFECTION [None]
  - OVERDOSE [None]
